FAERS Safety Report 9462259 (Version 3)
Quarter: 2013Q4

REPORT INFORMATION
  Report Type: Report from Study
  Country: US (occurrence: US)
  Receive Date: 20130816
  Receipt Date: 20131209
  Transmission Date: 20140711
  Serious: Yes (Hospitalization)
  Sender: FDA-Public Use
  Company Number: US-GLAXOSMITHKLINE-A1037775A

PATIENT
  Age: 45 Year
  Sex: Male
  Weight: 113.2 kg

DRUGS (5)
  1. GEMCITABINE [Suspect]
     Indication: SARCOMA
     Dosage: 900MGM2 CYCLIC
  2. TAXOTERE [Suspect]
     Indication: SARCOMA
     Dosage: 100MGM2 CYCLIC
  3. ONDANSETRON [Concomitant]
     Route: 042
     Dates: start: 20130805
  4. DEXAMETHASONE [Concomitant]
     Route: 042
     Dates: start: 20130805
  5. ZOMETA [Concomitant]
     Route: 042
     Dates: start: 20130715

REACTIONS (1)
  - Pyrexia [Not Recovered/Not Resolved]
